FAERS Safety Report 5318474-0 (Version None)
Quarter: 2007Q2

REPORT INFORMATION
  Report Type: 
  Country: None (occurrence: None)
  Receive Date: 20070501
  Receipt Date: 20070419
  Transmission Date: 20071010
  Serious: Yes (Hospitalization)
  Sender: FDA-Public Use
  Company Number: 028-C5013-07040347

PATIENT
  Age: 66 Year
  Sex: Female
  Weight: 62 kg

DRUGS (6)
  1. CC-5013 (LENALIDOMIDE) (CAPSULES) [Suspect]
     Indication: MULTIPLE MYELOMA
     Dosage: 10 MG, DAYS 1-21, 28 DAY CYCLE, ORAL
     Route: 048
     Dates: start: 20060309, end: 20070416
  2. HYDROMORPHONE HCL [Concomitant]
  3. OXAZEPAM [Concomitant]
  4. DOMPERIDONE (DOMPERIDONE) [Concomitant]
  5. COLACE (DOCUSATE SODIUM) [Concomitant]
  6. METFORMIN HCL [Concomitant]

REACTIONS (15)
  - ABDOMINAL TENDERNESS [None]
  - ALANINE AMINOTRANSFERASE INCREASED [None]
  - ASPARTATE AMINOTRANSFERASE INCREASED [None]
  - BLOOD ALKALINE PHOSPHATASE INCREASED [None]
  - BLOOD BILIRUBIN INCREASED [None]
  - BODY TEMPERATURE INCREASED [None]
  - BONE PAIN [None]
  - CHOLANGITIS [None]
  - CONSTIPATION [None]
  - GAMMA-GLUTAMYLTRANSFERASE INCREASED [None]
  - INFECTION [None]
  - INSOMNIA [None]
  - NAUSEA [None]
  - THROMBOCYTOPENIA [None]
  - WHITE BLOOD CELL COUNT DECREASED [None]
